FAERS Safety Report 12568241 (Version 1)
Quarter: 2016Q3

REPORT INFORMATION
  Report Type: Spontaneous
  Country: US (occurrence: US)
  Receive Date: 20160718
  Receipt Date: 20160718
  Transmission Date: 20161109
  Serious: No
  Sender: FDA-Public Use
  Company Number: US-JUBILANT CADISTA PHARMACEUTICALS-2015JUB00293

PATIENT
  Sex: Female
  Weight: 117.91 kg

DRUGS (2)
  1. MECLIZINE HYDROCHLORIDE. [Suspect]
     Active Substance: MECLIZINE HYDROCHLORIDE
     Indication: EAR DISORDER
     Dosage: UNK, ONCE
     Dates: start: 2014, end: 2014
  2. MECLIZINE HYDROCHLORIDE. [Suspect]
     Active Substance: MECLIZINE HYDROCHLORIDE
     Dosage: 25 UNK, UNK
     Dates: start: 20150917, end: 20150917

REACTIONS (4)
  - Dizziness [Not Recovered/Not Resolved]
  - Product use issue [Not Recovered/Not Resolved]
  - Feeling abnormal [Not Recovered/Not Resolved]
  - Asthenia [Not Recovered/Not Resolved]

NARRATIVE: CASE EVENT DATE: 2014
